FAERS Safety Report 14654717 (Version 4)
Quarter: 2021Q3

REPORT INFORMATION
  Report Type: Spontaneous
  Country: US (occurrence: US)
  Receive Date: 20180319
  Receipt Date: 20210920
  Transmission Date: 20211014
  Serious: No
  Sender: FDA-Public Use
  Company Number: US-CELLTRION INC.-2017US015495

PATIENT

DRUGS (6)
  1. INFLECTRA [Suspect]
     Active Substance: INFLIXIMAB-DYYB
     Dosage: 5 DF (VIALS), 0, 2, 6, AND THEN EVERY 8 WEEKS
     Route: 065
     Dates: start: 20171122, end: 20171122
  2. INFLECTRA [Suspect]
     Active Substance: INFLIXIMAB-DYYB
     Dosage: 5 DF (VIALS), 0, 2, 6, AND THEN EVERY 8 WEEKS
     Route: 065
     Dates: start: 20171212, end: 20171212
  3. INFLECTRA [Suspect]
     Active Substance: INFLIXIMAB-DYYB
     Dosage: UNK
     Route: 065
     Dates: start: 20180504, end: 20180504
  4. INFLECTRA [Suspect]
     Active Substance: INFLIXIMAB-DYYB
     Indication: COLITIS ULCERATIVE
     Dosage: 5 DF (VIALS), 0, 2, 6, AND THEN EVERY 8 WEEKS
     Route: 065
     Dates: start: 20171005, end: 20171005
  5. INFLECTRA [Suspect]
     Active Substance: INFLIXIMAB-DYYB
     Dosage: 5 DF (5 VIALS AT 0,2,6 AND THEN EVERY 8 WEEKS)
     Route: 065
     Dates: start: 20180219, end: 20180219
  6. INFLECTRA [Suspect]
     Active Substance: INFLIXIMAB-DYYB
     Dosage: UNK

REACTIONS (2)
  - Off label use [Unknown]
  - Product dose omission issue [Unknown]
